FAERS Safety Report 14185027 (Version 2)
Quarter: 2017Q4

REPORT INFORMATION
  Report Type: Spontaneous
  Country: US (occurrence: US)
  Receive Date: 20171113
  Receipt Date: 20171220
  Transmission Date: 20180321
  Serious: Yes (Death, Hospitalization)
  Sender: FDA-Public Use
  Company Number: US-MAYNE PHARMA-2017MYN002071

PATIENT

DRUGS (6)
  1. PRILOSEC [Concomitant]
     Active Substance: OMEPRAZOLE MAGNESIUM
  2. ABILIFY [Concomitant]
     Active Substance: ARIPIPRAZOLE
  3. VITAMINS                           /90003601/ [Concomitant]
     Active Substance: VITAMINS
  4. ZOLOFT [Concomitant]
     Active Substance: SERTRALINE HYDROCHLORIDE
  5. CLOZAPINE. [Suspect]
     Active Substance: CLOZAPINE
     Indication: PRODUCT USED FOR UNKNOWN INDICATION
     Dosage: 50 MG, BID
     Route: 048
     Dates: start: 20171211, end: 20171007
  6. REMERON [Concomitant]
     Active Substance: MIRTAZAPINE

REACTIONS (1)
  - Pneumonia [Fatal]
